FAERS Safety Report 17476814 (Version 3)
Quarter: 2020Q2

REPORT INFORMATION
  Report Type: Report from Study
  Country: DE (occurrence: DE)
  Receive Date: 20200228
  Receipt Date: 20200528
  Transmission Date: 20200713
  Serious: Yes (Other)
  Sender: FDA-Public Use
  Company Number: DE-JNJFOC-20191108535

PATIENT
  Age: 50 Year
  Sex: Female
  Weight: 105 kg

DRUGS (6)
  1. HCT [Concomitant]
     Active Substance: HYDROCHLOROTHIAZIDE
     Indication: PRE-EXISTING DISEASE
     Route: 065
     Dates: start: 20161115
  2. SIMPONI [Suspect]
     Active Substance: GOLIMUMAB
     Indication: AXIAL SPONDYLOARTHRITIS
     Route: 058
     Dates: start: 20190528
  3. IBUPROFEN. [Concomitant]
     Active Substance: IBUPROFEN
     Indication: AXIAL SPONDYLOARTHRITIS
     Route: 065
     Dates: start: 20161115
  4. CO-DIOVAN [Concomitant]
     Active Substance: HYDROCHLOROTHIAZIDE\VALSARTAN
     Indication: PRE-EXISTING DISEASE
     Dosage: 160/25 MG
     Route: 065
     Dates: start: 20161115
  5. DIENOGEST [Concomitant]
     Active Substance: DIENOGEST
     Indication: PRE-EXISTING DISEASE
     Route: 065
     Dates: start: 20161115
  6. VITAMIN D3 [Concomitant]
     Active Substance: CHOLECALCIFEROL
     Indication: PRE-EXISTING DISEASE
     Route: 065
     Dates: start: 20160118

REACTIONS (2)
  - Pneumonia [Recovered/Resolved]
  - Bronchitis [Recovered/Resolved]

NARRATIVE: CASE EVENT DATE: 20190909
